FAERS Safety Report 6471847-5 (Version None)
Quarter: 2009Q4

REPORT INFORMATION
  Report Type: 
  Country: None (occurrence: None)
  Receive Date: 20091203
  Receipt Date: 20080613
  Transmission Date: 20100525
  Serious: Yes (Death, Hospitalization)
  Sender: FDA-Public Use
  Company Number: US-ELI_LILLY_AND_COMPANY-US200804000227

PATIENT
  Age: 96 Year
  Sex: Female

DRUGS (11)
  1. FORTEO [Suspect]
     Indication: OSTEOPOROSIS
     Dosage: 20 UG, DAILY (1/D)
     Dates: start: 20080323, end: 20080101
  2. SOTALOL HCL [Concomitant]
     Indication: CARDIAC DISORDER
     Dosage: 160 MG, 2/D
  3. DIGITEK [Concomitant]
     Indication: CARDIAC DISORDER
     Dosage: 125 UG, DAILY (1/D)
  4. LIPITOR [Concomitant]
     Indication: BLOOD CHOLESTEROL
     Dosage: 10 MG, DAILY (1/D)
  5. AMLODIPINE [Concomitant]
     Indication: BLOOD PRESSURE
     Dosage: 5 MG, DAILY (1/D)
  6. LEVOXYL [Concomitant]
     Indication: THYROID DISORDER
     Dosage: 0.1 MG/KG, DAILY (1/D)
  7. COUMADIN [Concomitant]
     Indication: THROMBOSIS
     Dosage: 5 MG, DAILY (1/D)
  8. PRILOSEC [Concomitant]
     Indication: GASTROINTESTINAL DISORDER
     Dosage: 20 G, DAILY (1/D)
  9. TYLENOL                                 /SCH/ [Concomitant]
     Indication: ARTHRALGIA
     Dosage: 3 - 4 TIMES DAILY
  10. FOSAMAX [Concomitant]
     Indication: OSTEOPOROSIS
     Dosage: UNK, DAILY (1/D)
  11. POTASSIUM [Concomitant]
     Indication: SUPPLEMENTATION THERAPY
     Dosage: UNK, DAILY (1/D)
     Dates: end: 20080418

REACTIONS (17)
  - ANIMAL SCRATCH [None]
  - ARRHYTHMIA [None]
  - BALANCE DISORDER [None]
  - CARDIAC FAILURE CONGESTIVE [None]
  - CELLULITIS [None]
  - CYSTITIS [None]
  - DEATH [None]
  - DECREASED APPETITE [None]
  - DEMENTIA [None]
  - HEART RATE INCREASED [None]
  - INSOMNIA [None]
  - INTESTINAL OBSTRUCTION [None]
  - PNEUMONIA [None]
  - PULMONARY THROMBOSIS [None]
  - TRANSFUSION [None]
  - URINARY RETENTION [None]
  - WEIGHT DECREASED [None]
